FAERS Safety Report 11537432 (Version 1)
Quarter: 2015Q3

REPORT INFORMATION
  Report Type: Spontaneous
  Country: US (occurrence: US)
  Receive Date: 20150922
  Receipt Date: 20150922
  Transmission Date: 20151125
  Serious: No
  Sender: FDA-Public Use
  Company Number: US-PFIZER INC-2015311990

PATIENT
  Sex: Male

DRUGS (1)
  1. BICILLIN L-A [Suspect]
     Active Substance: PENICILLIN G BENZATHINE
     Indication: LYME DISEASE
     Dosage: UNK (BICILLIN LA 1.2MILLION UNITS PER 2ML )

REACTIONS (2)
  - Incorrect product storage [Unknown]
  - Drug ineffective for unapproved indication [Unknown]
